FAERS Safety Report 6882246-6 (Version None)
Quarter: 2010Q3

REPORT INFORMATION
  Report Type: 
  Country: None (occurrence: None)
  Receive Date: 20100729
  Receipt Date: 20100723
  Transmission Date: 20110219
  Serious: Yes (Death)
  Sender: FDA-Public Use
  Company Number: TR-ELI_LILLY_AND_COMPANY-TR201007005631

PATIENT
  Age: 48 Year
  Sex: Male

DRUGS (5)
  1. HUMALOG [Suspect]
     Indication: DIABETES MELLITUS
     Dosage: 18 U, 2/D
     Route: 058
     Dates: start: 20040101, end: 20100618
  2. LANTUS [Concomitant]
     Indication: DIABETES MELLITUS
     Dosage: 20 U, DAILY (1/D)
     Route: 058
  3. DELTACORTRIL [Concomitant]
     Indication: RENAL TRANSPLANT
     Route: 048
  4. MYFORTIC [Concomitant]
     Indication: RENAL TRANSPLANT
     Route: 048
  5. ANTIHYPERTENSIVES [Concomitant]
     Indication: HYPERTENSION

REACTIONS (2)
  - CEREBRAL ARTERY OCCLUSION [None]
  - RENAL TRANSPLANT [None]
